FAERS Safety Report 7302139-X (Version None)
Quarter: 2011Q1

REPORT INFORMATION
  Report Type: 
  Country: None (occurrence: None)
  Receive Date: 20110218
  Receipt Date: 20110214
  Transmission Date: 20110831
  Serious: Yes (Disabling, Other)
  Sender: FDA-Public Use
  Company Number: US-MERCK-1009USA04033

PATIENT
  Age: 91 Year
  Sex: Female

DRUGS (2)
  1. COZAAR [Suspect]
     Indication: HYPERTENSION
     Route: 048
     Dates: start: 19970101
  2. APRESOLINE [Concomitant]
     Route: 065

REACTIONS (11)
  - CONSTIPATION [None]
  - MUSCLE SPASMS [None]
  - RENAL PAIN [None]
  - ABDOMINAL DISCOMFORT [None]
  - HYPOAESTHESIA [None]
  - PARALYSIS [None]
  - PAIN IN EXTREMITY [None]
  - DYSURIA [None]
  - FATIGUE [None]
  - DEPRESSION [None]
  - MYALGIA [None]
